APPROVED DRUG PRODUCT: PARATHAR
Active Ingredient: TERIPARATIDE ACETATE
Strength: 200 UNITS/VIAL
Dosage Form/Route: INJECTABLE;INJECTION
Application: N019498 | Product #001
Applicant: SANOFI AVENTIS US LLC
Approved: Dec 23, 1987 | RLD: No | RS: No | Type: DISCN